FAERS Safety Report 10304062 (Version 2)
Quarter: 2014Q3

REPORT INFORMATION
  Report Type: Spontaneous
  Country: US (occurrence: US)
  Receive Date: 20140714
  Receipt Date: 20140807
  Transmission Date: 20150326
  Serious: Yes (Death, Other)
  Sender: FDA-Public Use
  Company Number: US-ROXANE LABORATORIES, INC.-2014-RO-01076RO

PATIENT
  Age: 77 Year
  Sex: Female

DRUGS (2)
  1. LORAZEPAM. [Suspect]
     Active Substance: LORAZEPAM
     Indication: RESTLESSNESS
  2. LORAZEPAM. [Suspect]
     Active Substance: LORAZEPAM
     Indication: HOSPICE CARE
     Route: 048
     Dates: start: 20140409, end: 20140413

REACTIONS (4)
  - Drug ineffective for unapproved indication [Unknown]
  - Dementia [Fatal]
  - Cardiac failure [Fatal]
  - Product quality issue [Unknown]

NARRATIVE: CASE EVENT DATE: 20140409
